FAERS Safety Report 14937206 (Version 1)
Quarter: 2018Q2

REPORT INFORMATION
  Report Type: Spontaneous
  Country: US (occurrence: US)
  Receive Date: 20180525
  Receipt Date: 20180525
  Transmission Date: 20180711
  Serious: Yes (Hospitalization, Other)
  Sender: FDA-Public Use
  Company Number: US-RECKITT BENCKISER HEALTHCARE INT LIMITED-RB-86319-2018

PATIENT
  Age: 40 Year
  Sex: Female

DRUGS (6)
  1. MUCINEX DM MAXIMUM STRENGTH [Suspect]
     Active Substance: DEXTROMETHORPHAN HYDROBROMIDE\GUAIFENESIN
     Dosage: 10800 MG, TID (PROVIDING 1620 MG/DAY OF DEXTROMETHORPHAN TOTAL) DAILY
     Route: 065
  2. ALCOHOL. [Suspect]
     Active Substance: ALCOHOL
     Indication: PRODUCT USED FOR UNKNOWN INDICATION
     Dosage: UNK
     Route: 065
  3. MUCINEX DM MAXIMUM STRENGTH [Suspect]
     Active Substance: DEXTROMETHORPHAN HYDROBROMIDE\GUAIFENESIN
     Indication: DRUG ABUSE
     Dosage: 10800 MG, TID (PROVIDING 1620 MG/DAY OF DEXTROMETHORPHAN TOTAL) 3 TO 4 TIMES PER MONTH
     Route: 065
  4. CORICIDIN HBP COUGH AND COLD [Suspect]
     Active Substance: CHLORPHENIRAMINE MALEATE\DEXTROMETHORPHAN HYDROBROMIDE
     Dosage: 12 DF, TID (PROVIDING 1080 MG/DAY OF DEXTROMETHORPHAN TOTAL) DAILY
     Route: 065
  5. MARIJUANA [Suspect]
     Active Substance: CANNABIS SATIVA SUBSP. INDICA TOP
     Indication: PRODUCT USED FOR UNKNOWN INDICATION
     Dosage: UNK
     Route: 065
  6. CORICIDIN HBP COUGH AND COLD [Suspect]
     Active Substance: CHLORPHENIRAMINE MALEATE\DEXTROMETHORPHAN HYDROBROMIDE
     Indication: DRUG ABUSE
     Dosage: 12 DF, TID (PROVIDING 1080 MG/DAY OF DEXTROMETHORPHAN TOTAL) 3 TO 4 TIMES PER MONTH
     Route: 065

REACTIONS (11)
  - Delusion [Recovered/Resolved]
  - Intentional overdose [Unknown]
  - Road traffic accident [Unknown]
  - Mood altered [Recovered/Resolved]
  - Irritability [Recovered/Resolved]
  - Hostility [Recovered/Resolved]
  - Drug abuse [Recovered/Resolved]
  - Illogical thinking [Recovered/Resolved]
  - Nightmare [Unknown]
  - Insomnia [Unknown]
  - Antisocial behaviour [Recovered/Resolved]
